FAERS Safety Report 11878474 (Version 2)
Quarter: 2016Q1

REPORT INFORMATION
  Report Type: Other
  Country: GB (occurrence: GB)
  Receive Date: 20151230
  Receipt Date: 20160111
  Transmission Date: 20160526
  Serious: Yes (Other)
  Sender: FDA-Public Use
  Company Number: GB-CIPLA LTD.-2015GB09870

PATIENT

DRUGS (14)
  1. GAVISCON [Concomitant]
     Active Substance: ALUMINUM HYDROXIDE\MAGNESIUM CARBONATE
     Indication: NAUSEA
     Dosage: 10 ML, AS NECESSARY
     Route: 048
     Dates: start: 20150622
  2. LANSOPRAZOLE. [Concomitant]
     Active Substance: LANSOPRAZOLE
     Indication: GASTROOESOPHAGEAL REFLUX PROPHYLAXIS
     Dosage: 30 MG, QD
     Route: 048
     Dates: start: 20150501
  3. CODEINE PHOSPHATE [Concomitant]
     Active Substance: CODEINE PHOSPHATE
     Indication: STOMA CARE
     Dosage: 60 MG, QID
     Route: 048
     Dates: start: 20150501
  4. CYCLIZINE [Concomitant]
     Active Substance: CYCLIZINE
     Indication: NAUSEA
     Dosage: 50 MG, PRN, AS NECESSARY
     Route: 048
     Dates: start: 20150812
  5. FLUOROURACIL. [Suspect]
     Active Substance: FLUOROURACIL
     Dosage: 2400 MG/M2, OVER 46 HOURS;  DAY 1 OF EACH 14 DAY CYCLE ONCE EVERY 2 WEEKS
     Route: 042
     Dates: start: 20150702
  6. VELIPARIB [Suspect]
     Active Substance: VELIPARIB
     Indication: COLORECTAL CANCER
     Dosage: DAY 2 THROUGH  5 OF EACH 21 DAY CYCLE, TWICE DAILY
     Route: 048
     Dates: start: 20150702
  7. FLUOROURACIL. [Suspect]
     Active Substance: FLUOROURACIL
     Indication: COLORECTAL CANCER
     Dosage: 400 MG/M2, OVER 15 MIN; DAY 1 OF EACH 21 DAY CYCLE ONCE EVERY 2 WEEKS
     Route: 040
     Dates: start: 20150702
  8. DIORALYTE [Concomitant]
     Active Substance: CITRIC ACID MONOHYDRATE\DEXTROSE\POTASSIUM CATION\SODIUM CHLORIDE
     Dosage: 1 DF, QD
     Route: 048
     Dates: start: 20150501
  9. LOPERAMIDE [Concomitant]
     Active Substance: LOPERAMIDE
     Indication: STOMA CARE
     Dosage: 2 MG, QID
     Route: 048
     Dates: start: 20150501
  10. DEXAMETHASONE. [Concomitant]
     Active Substance: DEXAMETHASONE
     Indication: PROPHYLAXIS OF NAUSEA AND VOMITING
     Dosage: 4 MG, BID
     Route: 048
     Dates: start: 20150813, end: 20150815
  11. FOLINIC ACID [Concomitant]
     Active Substance: LEUCOVORIN
     Indication: COLORECTAL CANCER
     Dosage: UNK
     Route: 065
     Dates: start: 20150702, end: 20150812
  12. DIORALYTE [Concomitant]
     Active Substance: CITRIC ACID MONOHYDRATE\DEXTROSE\POTASSIUM CATION\SODIUM CHLORIDE
     Indication: STOMA CARE
     Dosage: 1 DF, QD
     Route: 048
     Dates: start: 20150501
  13. METOCLOPRAMIDE. [Concomitant]
     Active Substance: METOCLOPRAMIDE
     Indication: NAUSEA
     Dosage: 10 MG, AS NECESSARY
     Route: 048
     Dates: start: 20150703
  14. IRINOTECAN [Suspect]
     Active Substance: IRINOTECAN
     Indication: COLORECTAL CANCER
     Dosage: 180 MG/M2, DAY 1 OF EACH 14 DAY CYCLE
     Route: 042
     Dates: start: 20150702

REACTIONS (5)
  - Blood creatinine increased [Recovered/Resolved]
  - Hyponatraemia [Recovered/Resolved]
  - Toxicity to various agents [Unknown]
  - Gastrointestinal stoma complication [Unknown]
  - Renal impairment [Unknown]

NARRATIVE: CASE EVENT DATE: 20150825
